FAERS Safety Report 10237654 (Version 1)
Quarter: 2014Q2

REPORT INFORMATION
  Report Type: Report from Study
  Country: ZA (occurrence: ZA)
  Receive Date: 20140616
  Receipt Date: 20140616
  Transmission Date: 20141212
  Serious: Yes (Death)
  Sender: FDA-Public Use
  Company Number: ZA-ROCHE-1418704

PATIENT
  Sex: Male

DRUGS (3)
  1. MIRCERA [Suspect]
     Indication: NEPHROGENIC ANAEMIA
     Dosage: LAST DOSE: /JAN/2014
     Route: 058
     Dates: start: 20121231
  2. MIRCERA [Suspect]
     Route: 058
     Dates: start: 201005
  3. MIRCERA [Suspect]
     Route: 058

REACTIONS (1)
  - Death [Fatal]
